FAERS Safety Report 10097026 (Version 2)
Quarter: 2014Q2

REPORT INFORMATION
  Report Type: Spontaneous
  Country: US (occurrence: US)
  Receive Date: 20140422
  Receipt Date: 20140422
  Transmission Date: 20141212
  Serious: No
  Sender: FDA-Public Use
  Company Number: US-GILEAD-2012-0064061

PATIENT
  Sex: Male

DRUGS (4)
  1. LETAIRIS [Suspect]
     Indication: PULMONARY ARTERIAL HYPERTENSION
     Dosage: 10 MG, QD
     Route: 048
     Dates: start: 20100901
  2. TYVASO [Suspect]
  3. ADCIRCA [Concomitant]
  4. TYVASO [Concomitant]

REACTIONS (5)
  - Upper respiratory tract infection [Recovered/Resolved]
  - Diarrhoea [Recovering/Resolving]
  - Cough [Recovered/Resolved]
  - Upper respiratory tract congestion [Unknown]
  - Headache [Recovering/Resolving]
